FAERS Safety Report 12613602 (Version 1)
Quarter: 2016Q3

REPORT INFORMATION
  Report Type: Spontaneous
  Country: IT (occurrence: IT)
  Receive Date: 20160802
  Receipt Date: 20160802
  Transmission Date: 20161109
  Serious: Yes (Life-Threatening)
  Sender: FDA-Public Use
  Company Number: IT-ACTAVIS-2015-29783

PATIENT
  Age: 43 Year
  Sex: Female

DRUGS (1)
  1. PACLITAXEL ACTAVIS [Suspect]
     Active Substance: PACLITAXEL
     Indication: OVARIAN NEOPLASM
     Dosage: 300 MG, TOTAL
     Route: 042
     Dates: start: 20150903, end: 20150903

REACTIONS (7)
  - Respiratory arrest [Recovering/Resolving]
  - Loss of consciousness [Recovering/Resolving]
  - Hypersensitivity [Recovering/Resolving]
  - Cyanosis [Recovering/Resolving]
  - Supraventricular tachycardia [Recovering/Resolving]
  - Urinary incontinence [Recovering/Resolving]
  - Palpitations [Recovering/Resolving]

NARRATIVE: CASE EVENT DATE: 20150903
